FAERS Safety Report 13012721 (Version 1)
Quarter: 2016Q4

REPORT INFORMATION
  Report Type: Spontaneous
  Country: US (occurrence: US)
  Receive Date: 20161209
  Receipt Date: 20161209
  Transmission Date: 20170207
  Serious: Yes (Other)
  Sender: FDA-Public Use
  Company Number: US-TEVA-713182USA

PATIENT
  Age: 76 Year
  Sex: Female
  Weight: 79.36 kg

DRUGS (3)
  1. GUAIFENESIN EXTENDED RELEASE [Suspect]
     Active Substance: GUAIFENESIN
     Indication: RESPIRATORY TRACT CONGESTION
     Dosage: 1200 MILLIGRAM DAILY;
     Route: 048
     Dates: start: 20161108, end: 20161108
  2. SIMVASTATIN. [Concomitant]
     Active Substance: SIMVASTATIN
  3. SYNTHROID [Concomitant]
     Active Substance: LEVOTHYROXINE SODIUM

REACTIONS (14)
  - Swelling face [Recovering/Resolving]
  - Pruritus [Recovered/Resolved]
  - Pharyngeal oedema [Unknown]
  - Cough [Recovered/Resolved]
  - Eye swelling [Recovering/Resolving]
  - Oropharyngeal pain [Recovering/Resolving]
  - Hypersensitivity [Recovering/Resolving]
  - Eye pruritus [Recovered/Resolved]
  - Swollen tongue [Recovering/Resolving]
  - Restlessness [Recovered/Resolved]
  - Ocular hyperaemia [Recovered/Resolved]
  - Lip swelling [Recovering/Resolving]
  - Pharyngeal erythema [Recovering/Resolving]
  - Rash [Recovered/Resolved]

NARRATIVE: CASE EVENT DATE: 20161108
